FAERS Safety Report 8349476-8 (Version None)
Quarter: 2012Q2

REPORT INFORMATION
  Report Type: 
  Country: None (occurrence: None)
  Receive Date: 20120510
  Receipt Date: 20120503
  Transmission Date: 20120825
  Serious: Yes (Other)
  Sender: FDA-Public Use
  Company Number: MX-SANOFI-AVENTIS-2012SA031621

PATIENT
  Age: 77 Year
  Sex: Female
  Weight: 49 kg

DRUGS (4)
  1. ARAVA [Suspect]
     Route: 048
     Dates: start: 20120502
  2. BI-EUGLUCON [Concomitant]
     Indication: TYPE 2 DIABETES MELLITUS
     Dosage: FREQUENCY: 1-1-1
     Route: 048
  3. ANALGESICS [Concomitant]
     Indication: RHEUMATOID ARTHRITIS
     Route: 048
  4. ARAVA [Suspect]
     Indication: RHEUMATOID ARTHRITIS
     Route: 048
     Dates: start: 20020101, end: 20120430

REACTIONS (6)
  - DISCOMFORT [None]
  - HYPERTENSION [None]
  - RENAL FAILURE [None]
  - BACK PAIN [None]
  - IRRITABILITY [None]
  - ARTHRALGIA [None]
